FAERS Safety Report 9185965 (Version 1)
Quarter: 2013Q1

REPORT INFORMATION
  Report Type: Spontaneous
  Country: US (occurrence: None)
  Receive Date: 20120628
  Receipt Date: 20120628
  Transmission Date: 20140127
  Serious: Yes (Disabling)
  Sender: FDA-Public Use
  Company Number: PHHY2011US36921

PATIENT
  Age: 42 Year
  Sex: 0
  Weight: 61.7 kg

DRUGS (4)
  1. RECLAST (ZOLEDRONATE) SOLUTION FOR INJECTION [Suspect]
     Indication: OSTEOPOROSIS
     Route: 042
     Dates: start: 20110119
  2. LEXAPRO (ESCITALOPRAM OXALATE) [Concomitant]
  3. PREMPRO (ESTROGENS CONJUGATED [Concomitant]
  4. LYCET [Concomitant]

REACTIONS (17)
  - Arthralgia [None]
  - Oropharyngeal pain [None]
  - Heart rate irregular [None]
  - Mood altered [None]
  - Depression [None]
  - Nausea [None]
  - Vomiting [None]
  - Diarrhoea [None]
  - Fatigue [None]
  - Asthenia [None]
  - Dizziness [None]
  - Muscle spasms [None]
  - Muscle spasms [None]
  - Bone pain [None]
  - Arthralgia [None]
  - Myalgia [None]
  - Influenza like illness [None]
